FAERS Safety Report 21991990 (Version 4)
Quarter: 2023Q1

REPORT INFORMATION
  Report Type: Spontaneous
  Country: JP (occurrence: JP)
  Receive Date: 20230214
  Receipt Date: 20230323
  Transmission Date: 20230418
  Serious: Yes (Hospitalization)
  Sender: FDA-Public Use
  Company Number: JP-SA-2020SA264220

PATIENT
  Age: 5 Year
  Sex: Male
  Weight: 16 kg

DRUGS (46)
  1. SABRIL [Suspect]
     Active Substance: VIGABATRIN
     Indication: Infantile spasms
     Dosage: 950 MG, BID (82.6 MG/KG/DAY)
     Route: 048
     Dates: start: 20220909
  2. SABRIL [Suspect]
     Active Substance: VIGABATRIN
     Dosage: 140 MG, BID
     Route: 048
     Dates: start: 20190204, end: 20190205
  3. SABRIL [Suspect]
     Active Substance: VIGABATRIN
     Dosage: 235 MG, BID
     Route: 048
     Dates: start: 20190206, end: 20190303
  4. SABRIL [Suspect]
     Active Substance: VIGABATRIN
     Dosage: 330 MG, BID
     Route: 048
     Dates: start: 20190304, end: 20190410
  5. SABRIL [Suspect]
     Active Substance: VIGABATRIN
     Dosage: 435 MG, BID
     Route: 048
     Dates: start: 20190411, end: 20190702
  6. SABRIL [Suspect]
     Active Substance: VIGABATRIN
     Dosage: 340 MG, BID
     Route: 048
     Dates: start: 20190703, end: 20190807
  7. SABRIL [Suspect]
     Active Substance: VIGABATRIN
     Dosage: 275 MG, BID
     Route: 048
     Dates: start: 20190808, end: 20190908
  8. SABRIL [Suspect]
     Active Substance: VIGABATRIN
     Dosage: 165 MG, BID
     Route: 048
     Dates: start: 20190909, end: 20191006
  9. SABRIL [Suspect]
     Active Substance: VIGABATRIN
     Dosage: 82.5 MG, BID
     Route: 048
     Dates: start: 20191007, end: 20191104
  10. SABRIL [Suspect]
     Active Substance: VIGABATRIN
     Dosage: 150 MG, BID
     Route: 048
     Dates: start: 20191218, end: 20191225
  11. SABRIL [Suspect]
     Active Substance: VIGABATRIN
     Dosage: 200 MG, BID
     Route: 048
     Dates: start: 20191226, end: 20200108
  12. SABRIL [Suspect]
     Active Substance: VIGABATRIN
     Dosage: 250 MG, BID
     Route: 048
     Dates: start: 20200109, end: 20200204
  13. SABRIL [Suspect]
     Active Substance: VIGABATRIN
     Dosage: 300 MG, BID
     Route: 048
     Dates: start: 20200205, end: 20200311
  14. SABRIL [Suspect]
     Active Substance: VIGABATRIN
     Dosage: 350 MG, BID
     Route: 048
     Dates: start: 20200312, end: 20200412
  15. SABRIL [Suspect]
     Active Substance: VIGABATRIN
     Dosage: 400 MG, BID
     Route: 048
     Dates: start: 20200413, end: 20200518
  16. SABRIL [Suspect]
     Active Substance: VIGABATRIN
     Dosage: 440 MG, BID
     Route: 048
     Dates: start: 20200519, end: 20200614
  17. SABRIL [Suspect]
     Active Substance: VIGABATRIN
     Dosage: 500 MG, BID
     Route: 048
     Dates: start: 20200615, end: 20200802
  18. SABRIL [Suspect]
     Active Substance: VIGABATRIN
     Dosage: 550 MG, BID
     Route: 048
     Dates: start: 20200803, end: 20201204
  19. SABRIL [Suspect]
     Active Substance: VIGABATRIN
     Dosage: 600 MG, BID
     Route: 048
     Dates: start: 20201205, end: 20210801
  20. SABRIL [Suspect]
     Active Substance: VIGABATRIN
     Dosage: 650 MG, BID
     Route: 048
     Dates: start: 20210802, end: 20211003
  21. SABRIL [Suspect]
     Active Substance: VIGABATRIN
     Dosage: 700 MG, BID
     Route: 048
     Dates: start: 20211004, end: 20211205
  22. SABRIL [Suspect]
     Active Substance: VIGABATRIN
     Dosage: 750 MG, BID
     Route: 048
     Dates: start: 20211206, end: 20220206
  23. SABRIL [Suspect]
     Active Substance: VIGABATRIN
     Dosage: 800 MG, BID
     Route: 048
     Dates: start: 20220207, end: 20220314
  24. SABRIL [Suspect]
     Active Substance: VIGABATRIN
     Dosage: 850 MG, BID
     Route: 048
     Dates: start: 20220315, end: 20220703
  25. SABRIL [Suspect]
     Active Substance: VIGABATRIN
     Dosage: 900 MG, BID
     Route: 048
     Dates: start: 20220704, end: 20220908
  26. VALPROATE SODIUM [Suspect]
     Active Substance: VALPROATE SODIUM
     Indication: Infantile spasms
     Dosage: DAILY DOSE: 300 MG
     Route: 048
     Dates: start: 20190703, end: 20220908
  27. VALPROATE SODIUM [Suspect]
     Active Substance: VALPROATE SODIUM
     Dosage: DAILY DOSE: 220 MG
     Route: 048
     Dates: end: 20190604
  28. VALPROATE SODIUM [Suspect]
     Active Substance: VALPROATE SODIUM
     Dosage: DAILY DOSE: 260 MG
     Route: 048
     Dates: start: 20190605, end: 20190702
  29. VALPROATE SODIUM [Suspect]
     Active Substance: VALPROATE SODIUM
     Dosage: DAILY DOSE: 340 MG
     Route: 048
     Dates: start: 20220909, end: 20221106
  30. VALPROATE SODIUM [Suspect]
     Active Substance: VALPROATE SODIUM
     Dosage: DAILY DOSE: 400 MG
     Route: 048
     Dates: start: 20221107
  31. PHENOBARBITAL [Suspect]
     Active Substance: PHENOBARBITAL
     Indication: Infantile spasms
     Dosage: DAILY DOSE: 35 MG
     Route: 048
  32. LAMOTRIGINE [Suspect]
     Active Substance: LAMOTRIGINE
     Indication: Infantile spasms
     Dosage: DAILY DOSE: 34 MG
     Route: 048
  33. VITAMINS [Concomitant]
     Active Substance: VITAMINS
     Indication: Product used for unknown indication
     Dosage: DAILY DOSE: 0.2 G
     Route: 048
  34. SINGULAIR [Concomitant]
     Active Substance: MONTELUKAST SODIUM
     Indication: Product used for unknown indication
     Dosage: DAILY DOSE: 4 MG
     Route: 048
  35. LEVOCARNITINE [Concomitant]
     Active Substance: LEVOCARNITINE
     Indication: Prophylaxis
     Dosage: DAILY DOSE: 1.2 ML
     Route: 048
  36. LEVOCARNITINE [Concomitant]
     Active Substance: LEVOCARNITINE
     Indication: Investigation
  37. DANTRIUM [Concomitant]
     Active Substance: DANTROLENE SODIUM
     Indication: Product used for unknown indication
     Dosage: DAILY DOSE: 9 MG
     Route: 048
  38. POTASSIUM CITRATE\TRISODIUM CITRATE DIHYDRATE [Concomitant]
     Active Substance: POTASSIUM CITRATE\TRISODIUM CITRATE DIHYDRATE
     Indication: Prophylaxis
     Dosage: DAILY DOSE: 1 DF
     Route: 048
  39. POTASSIUM CITRATE\TRISODIUM CITRATE DIHYDRATE [Concomitant]
     Active Substance: POTASSIUM CITRATE\TRISODIUM CITRATE DIHYDRATE
     Indication: Investigation
  40. RIKKUNSHITO [ATRACTYLODES LANCEA RHIZOME;CITRUS AURANTIUM PEEL;GLYCYRR [Concomitant]
     Indication: Product used for unknown indication
     Dosage: DAILY DOSE: 2.5 G
     Route: 048
  41. MUCOSAL [ACETYLCYSTEINE] [Concomitant]
     Indication: Product used for unknown indication
     Dosage: DAILY DOSE: 4.5 MG
     Route: 048
  42. CARBOCYSTEINE [Concomitant]
     Active Substance: CARBOCYSTEINE
     Indication: Product used for unknown indication
     Dosage: DAILY DOSE: 250 MG
     Route: 048
  43. TULOBUTEROL [Concomitant]
     Active Substance: TULOBUTEROL
     Indication: Product used for unknown indication
     Dosage: DAILY DOSE: 0.5 MG
     Route: 061
  44. PULMICORT TURBUHALER [Concomitant]
     Active Substance: BUDESONIDE
     Indication: Product used for unknown indication
     Dosage: DAILY DOSE: 1 INHALATION
     Route: 055
  45. MELATOBEL [Concomitant]
     Indication: Product used for unknown indication
     Dosage: DAILY DOSE: 0.125 G
     Route: 048
     Dates: start: 20201204
  46. EPINASTINE [Concomitant]
     Active Substance: EPINASTINE
     Indication: Product used for unknown indication
     Dosage: DAILY DOSE: 5 MG
     Route: 048
     Dates: start: 20220411

REACTIONS (3)
  - COVID-19 [Recovered/Resolved]
  - Hepatic function abnormal [Unknown]
  - Gastritis [Recovered/Resolved]

NARRATIVE: CASE EVENT DATE: 20220315
